FAERS Safety Report 10569292 (Version 3)
Quarter: 2015Q1

REPORT INFORMATION
  Report Type: Spontaneous
  Country: JP (occurrence: JP)
  Receive Date: 20141106
  Receipt Date: 20150210
  Transmission Date: 20150720
  Serious: Yes (Life-Threatening, Other)
  Sender: FDA-Public Use
  Company Number: JP-TAKEDA-2014TUS010886

PATIENT
  Age: 77 Year
  Sex: Male
  Weight: 53 kg

DRUGS (12)
  1. SELBEX [Concomitant]
     Active Substance: TEPRENONE
     Indication: GASTRIC ULCER
     Dosage: 0.5 G, TID
     Route: 048
     Dates: start: 20051208
  2. FEBURIC [Suspect]
     Active Substance: FEBUXOSTAT
     Indication: HYPERURICAEMIA
     Dosage: 10 MG, QD
     Route: 048
     Dates: start: 20140808
  3. ALDACTONE [Concomitant]
     Active Substance: SPIRONOLACTONE
     Indication: CARDIAC FAILURE
     Dosage: 25 MG, QD
     Route: 048
     Dates: start: 20051208
  4. NESP [Concomitant]
     Active Substance: DARBEPOETIN ALFA
     Indication: NEPHROGENIC ANAEMIA
     Dosage: 30 ?G, MONTHLY
     Route: 058
     Dates: start: 20140613
  5. ARTIST [Concomitant]
     Active Substance: CARVEDILOL
     Indication: CARDIAC FAILURE
     Dosage: 2.5 MG, BID
     Route: 048
     Dates: start: 20060619
  6. LASIX [Concomitant]
     Active Substance: FUROSEMIDE
     Indication: CARDIAC FAILURE
     Dosage: 20 MG, QD
     Route: 048
     Dates: start: 20051208
  7. WARFARIN K [Suspect]
     Active Substance: WARFARIN POTASSIUM
     Dosage: 2.75 MG, QD
     Route: 048
     Dates: start: 20140905, end: 20140912
  8. WARFARIN K [Suspect]
     Active Substance: WARFARIN POTASSIUM
     Dosage: 2 MG, QD
     Route: 048
     Dates: start: 20140913, end: 20140916
  9. PARIET [Concomitant]
     Active Substance: RABEPRAZOLE SODIUM
     Indication: GASTROOESOPHAGEAL REFLUX DISEASE
     Dosage: 10 MG, QD
     Route: 048
     Dates: start: 20121026
  10. WARFARIN K [Suspect]
     Active Substance: WARFARIN POTASSIUM
     Dosage: 2.25 MG, QD
     Route: 048
     Dates: start: 20140917
  11. WARFARIN K [Suspect]
     Active Substance: WARFARIN POTASSIUM
     Indication: HEART VALVE REPLACEMENT
     Dosage: 3 MG, QD
     Route: 048
     Dates: start: 1989, end: 20140904
  12. MYSLEE [Concomitant]
     Active Substance: ZOLPIDEM TARTRATE
     Indication: INSOMNIA
     Dosage: 10 MG, QD
     Route: 048
     Dates: start: 20051208

REACTIONS (3)
  - Subdural haematoma [Recovering/Resolving]
  - Drug interaction [Recovering/Resolving]
  - Haemorrhage subcutaneous [Recovering/Resolving]

NARRATIVE: CASE EVENT DATE: 20140905
